FAERS Safety Report 10923629 (Version 2)
Quarter: 2015Q2

REPORT INFORMATION
  Report Type: Spontaneous
  Country: US (occurrence: US)
  Receive Date: 20150318
  Receipt Date: 20150526
  Transmission Date: 20150821
  Serious: No
  Sender: FDA-Public Use
  Company Number: US-JNJFOC-20141008387

PATIENT
  Sex: Male

DRUGS (1)
  1. HALOPERIDOL INJECTION [Suspect]
     Active Substance: HALOPERIDOL
     Indication: PRODUCT USED FOR UNKNOWN INDICATION
     Route: 030

REACTIONS (5)
  - Dizziness [Unknown]
  - Somnolence [Unknown]
  - Injection site pain [Unknown]
  - Application site haemorrhage [Unknown]
  - Product colour issue [Unknown]

NARRATIVE: CASE EVENT DATE: 20141009
